FAERS Safety Report 5774309-3 (Version None)
Quarter: 2008Q2

REPORT INFORMATION
  Report Type: 
  Country: None (occurrence: None)
  Receive Date: 20080616
  Receipt Date: 20080606
  Transmission Date: 20081010
  Serious: Yes (Hospitalization)
  Sender: FDA-Public Use
  Company Number: FR-PFIZER INC-2006127499

PATIENT
  Sex: Female

DRUGS (4)
  1. GENOTONORM [Suspect]
     Indication: HYPOPITUITARISM
     Route: 058
     Dates: start: 20040618, end: 20060901
  2. GENOTONORM [Suspect]
     Dosage: DAILY DOSE:1.3MG
     Route: 058
  3. TEGRETOL [Concomitant]
  4. DECAPEPTYL [Concomitant]
     Dosage: FREQ:3 MG MONTHLY
     Route: 048
     Dates: start: 20050214, end: 20061107

REACTIONS (2)
  - NEOPLASM RECURRENCE [None]
  - OPTIC TRACT GLIOMA [None]
